FAERS Safety Report 26010907 (Version 1)
Quarter: 2025Q4

REPORT INFORMATION
  Report Type: Spontaneous
  Country: AU (occurrence: AU)
  Receive Date: 20251107
  Receipt Date: 20251107
  Transmission Date: 20260119
  Serious: Yes (Other)
  Sender: CSL BEHRING
  Company Number: AU-BEH-2025223918

PATIENT
  Age: 68 Year
  Sex: Male
  Weight: 97 kg

DRUGS (3)
  1. HUMAN IMMUNOGLOBULIN G [Suspect]
     Active Substance: HUMAN IMMUNOGLOBULIN G
     Indication: Hypogammaglobulinaemia
     Dosage: UNK, QMT
     Route: 042
  2. HUMAN IMMUNOGLOBULIN G [Suspect]
     Active Substance: HUMAN IMMUNOGLOBULIN G
     Indication: Chronic lymphocytic leukaemia
     Dosage: UNK
     Route: 042
  3. HUMAN IMMUNOGLOBULIN G [Suspect]
     Active Substance: HUMAN IMMUNOGLOBULIN G
     Dosage: UNK
     Route: 042

REACTIONS (3)
  - Atrial fibrillation [Recovered/Resolved]
  - Heart rate irregular [Recovered/Resolved]
  - Heart rate increased [Recovered/Resolved]

NARRATIVE: CASE EVENT DATE: 20251021
